FAERS Safety Report 6205249-3 (Version None)
Quarter: 2009Q2

REPORT INFORMATION
  Report Type: 
  Country: None (occurrence: None)
  Receive Date: 20090527
  Receipt Date: 20090303
  Transmission Date: 20091009
  Serious: No
  Sender: FDA-Public Use
  Company Number: US-ABBOTT-09P-163-0560742-00

PATIENT
  Sex: Female
  Weight: 136.2 kg

DRUGS (10)
  1. SIMCOR [Suspect]
     Indication: BLOOD CHOLESTEROL INCREASED
     Dosage: 500/20 DAILY
     Route: 048
     Dates: start: 20090224
  2. PAXIL [Concomitant]
     Indication: DRUG USE FOR UNKNOWN INDICATION
  3. ZESTORETIC [Concomitant]
     Indication: DRUG USE FOR UNKNOWN INDICATION
  4. ZYLOPRIM [Concomitant]
     Indication: DRUG USE FOR UNKNOWN INDICATION
  5. ACTOPLUS MET [Concomitant]
     Indication: DRUG USE FOR UNKNOWN INDICATION
  6. LYRICA [Concomitant]
     Indication: DRUG USE FOR UNKNOWN INDICATION
  7. LOVASA [Concomitant]
     Indication: DRUG USE FOR UNKNOWN INDICATION
  8. RITALIN [Concomitant]
     Indication: DRUG USE FOR UNKNOWN INDICATION
  9. PROVIGIL [Concomitant]
     Indication: DRUG USE FOR UNKNOWN INDICATION
  10. NOVALOG 70/30 [Concomitant]
     Indication: DRUG USE FOR UNKNOWN INDICATION
     Route: 058

REACTIONS (3)
  - ERYTHEMA [None]
  - FEELING HOT [None]
  - INSOMNIA [None]
